FAERS Safety Report 9553654 (Version 3)
Quarter: 2013Q3

REPORT INFORMATION
  Report Type: Report from Study
  Country: DE (occurrence: DE)
  Receive Date: 20130925
  Receipt Date: 20130927
  Transmission Date: 20140515
  Serious: Yes (Hospitalization)
  Sender: FDA-Public Use
  Company Number: DE-ABBVIE-13P-062-1079544-00

PATIENT
  Sex: Female

DRUGS (1)
  1. HUMIRA [Suspect]
     Indication: CROHN^S DISEASE
     Route: 058
     Dates: start: 20130301, end: 20130315

REACTIONS (6)
  - Hypophagia [Not Recovered/Not Resolved]
  - Skin burning sensation [Recovering/Resolving]
  - Intestinal operation [Not Recovered/Not Resolved]
  - Crohn^s disease [Recovering/Resolving]
  - Abdominal abscess [Recovering/Resolving]
  - Colostomy [Unknown]
